FAERS Safety Report 10381152 (Version 3)
Quarter: 2014Q4

REPORT INFORMATION
  Report Type: Spontaneous
  Country: US (occurrence: None)
  Receive Date: 20140808
  Receipt Date: 20141113
  Transmission Date: 20150528
  Serious: Yes (Other)
  Sender: FDA-Public Use
  Company Number: 2014-US-009049

PATIENT
  Age: 55 Year
  Sex: Female
  Weight: 68.9 kg

DRUGS (5)
  1. XYREM [Suspect]
     Active Substance: SODIUM OXYBATE
     Indication: INSOMNIA
     Route: 048
     Dates: start: 20140715, end: 20140723
  2. BENADRYL [Suspect]
     Active Substance: DIPHENHYDRAMINE HYDROCHLORIDE
     Indication: PRODUCT USED FOR UNKNOWN INDICATION
  3. WELLBUTRIN [Concomitant]
     Active Substance: BUPROPION HYDROCHLORIDE
  4. TRAZODONE [Suspect]
     Active Substance: TRAZODONE HYDROCHLORIDE
     Indication: INSOMNIA
     Route: 048
     Dates: start: 20130903
  5. GABAPENTIN. [Suspect]
     Active Substance: GABAPENTIN
     Indication: INSOMNIA
     Dosage: 600 MG, FOUR TIMES AT BEDTIME, ORAL
     Route: 048
     Dates: start: 20130903

REACTIONS (34)
  - Oropharyngeal pain [None]
  - Feeling abnormal [None]
  - Nausea [None]
  - Confusional state [None]
  - Tremor [None]
  - Fall [None]
  - Mania [None]
  - Skin odour abnormal [None]
  - Tachyphrenia [None]
  - Insomnia [None]
  - Attention deficit/hyperactivity disorder [None]
  - Off label use [None]
  - Time perception altered [None]
  - Diarrhoea [None]
  - Vomiting [None]
  - Pain [None]
  - Weight decreased [None]
  - Obsessive-compulsive personality disorder [None]
  - Speech disorder [None]
  - Condition aggravated [None]
  - Eye pain [None]
  - Bradyphrenia [None]
  - Headache [None]
  - Anxiety [None]
  - Hyperhidrosis [None]
  - Feeling jittery [None]
  - Dizziness [None]
  - Drug withdrawal syndrome [None]
  - Dyspnoea [None]
  - Somnolence [None]
  - Rhinorrhoea [None]
  - Balance disorder [None]
  - Memory impairment [None]
  - Obsessive thoughts [None]

NARRATIVE: CASE EVENT DATE: 201407
